FAERS Safety Report 13761557 (Version 1)
Quarter: 2017Q3

REPORT INFORMATION
  Report Type: Report from Study
  Country: AU (occurrence: AU)
  Receive Date: 20170717
  Receipt Date: 20170717
  Transmission Date: 20171127
  Serious: Yes (Hospitalization, Other)
  Sender: FDA-Public Use
  Company Number: AU-REGENERON PHARMACEUTICALS, INC.-2017-18630

PATIENT

DRUGS (1)
  1. EYLEA [Suspect]
     Active Substance: AFLIBERCEPT
     Indication: NEOVASCULAR AGE-RELATED MACULAR DEGENERATION
     Dosage: DOSE AND FREQUENCY NOT REPORTED. TOTAL NUMBER OF INJECTIONS NOT REPORTED
     Route: 031
     Dates: start: 20160614

REACTIONS (5)
  - Injection site pain [Recovered/Resolved]
  - Vitreous floaters [Unknown]
  - Eye infection [Recovered/Resolved]
  - Peripheral swelling [Unknown]
  - Ocular hyperaemia [Recovered/Resolved]

NARRATIVE: CASE EVENT DATE: 201705
